FAERS Safety Report 5366585-6 (Version None)
Quarter: 2007Q2

REPORT INFORMATION
  Report Type: 
  Country: None (occurrence: None)
  Receive Date: 20070622
  Receipt Date: 20070613
  Transmission Date: 20071010
  Serious: Yes (Other)
  Sender: FDA-Public Use
  Company Number: US-PFIZER INC-2007049431

PATIENT
  Sex: Female
  Weight: 68 kg

DRUGS (5)
  1. LYRICA [Suspect]
     Indication: DIABETIC NEUROPATHY
  2. ATENOLOL [Concomitant]
  3. NORVASC [Concomitant]
  4. MULTIVITAMIN [Concomitant]
  5. CLONIDINE [Concomitant]

REACTIONS (4)
  - ABNORMAL DREAMS [None]
  - CATARACT OPERATION [None]
  - EXPIRED DRUG ADMINISTERED [None]
  - PAIN IN EXTREMITY [None]
